FAERS Safety Report 21720492 (Version 2)
Quarter: 2023Q2

REPORT INFORMATION
  Report Type: Report from Study
  Country: CA (occurrence: CA)
  Receive Date: 20221213
  Receipt Date: 20230531
  Transmission Date: 20230721
  Serious: Yes (Hospitalization)
  Sender: FDA-Public Use
  Company Number: CA-TAKEDA-CA202014817

PATIENT
  Age: 47 Year
  Sex: Female
  Weight: 81.65 kg

DRUGS (24)
  1. HUMAN IMMUNOGLOBULIN G [Suspect]
     Active Substance: HUMAN IMMUNOGLOBULIN G
     Indication: Chronic inflammatory demyelinating polyradiculoneuropathy
     Dosage: 60 MILLIGRAM, 1X/WEEK
     Route: 058
     Dates: start: 20200427
  2. HUMAN IMMUNOGLOBULIN G [Suspect]
     Active Substance: HUMAN IMMUNOGLOBULIN G
     Dosage: UNK
     Route: 058
  3. HUMAN IMMUNOGLOBULIN G [Suspect]
     Active Substance: HUMAN IMMUNOGLOBULIN G
     Dosage: 100 MILLIGRAM, Q3WEEKS
     Route: 065
     Dates: start: 202004
  4. HUMAN IMMUNOGLOBULIN G [Suspect]
     Active Substance: HUMAN IMMUNOGLOBULIN G
     Dosage: 50 MILLIGRAM, Q3WEEKS
     Route: 065
     Dates: start: 202101
  5. HUMAN IMMUNOGLOBULIN G [Suspect]
     Active Substance: HUMAN IMMUNOGLOBULIN G
     Dosage: 60 GRAM, 1/WEEK
     Route: 050
  6. Human normal immunoglobuline [Concomitant]
     Indication: Product used for unknown indication
     Dosage: 60 GRAM, 1/WEEK
     Route: 058
     Dates: start: 202004
  7. Human normal immunoglobuline [Concomitant]
     Dosage: 50 GRAM, 1/WEEK
     Route: 042
     Dates: start: 202101
  8. SPIRIVA RESPIMAT [Concomitant]
     Active Substance: TIOTROPIUM BROMIDE
     Indication: Product used for unknown indication
     Route: 065
  9. AMITRIPTYLINE [Concomitant]
     Active Substance: AMITRIPTYLINE
     Indication: Neuralgia
     Dosage: 10 MILLIGRAM
     Route: 065
  10. AMITRIPTYLINE [Concomitant]
     Active Substance: AMITRIPTYLINE
     Dosage: 30 MILLIGRAM
     Route: 065
  11. DICLOFENAC [Concomitant]
     Active Substance: DICLOFENAC
     Indication: Neuralgia
  12. MESTINON [Concomitant]
     Active Substance: PYRIDOSTIGMINE BROMIDE
     Dosage: 60 MILLIGRAM, TID
     Route: 048
  13. AZATHIOPRINE [Concomitant]
     Active Substance: AZATHIOPRINE
     Dosage: 200 MILLIGRAM, QD
     Route: 048
     Dates: start: 201608
  14. AZATHIOPRINE [Concomitant]
     Active Substance: AZATHIOPRINE
     Dosage: 150 MILLIGRAM, QD
     Route: 048
  15. GABAPENTIN [Concomitant]
     Active Substance: GABAPENTIN
     Dosage: 300 MILLIGRAM, TID
     Route: 048
  16. CARBAMAZEPINE [Concomitant]
     Active Substance: CARBAMAZEPINE
     Dosage: 200 MILLIGRAM, BID
     Route: 048
  17. VITAMIN B12 [Concomitant]
     Active Substance: CYANOCOBALAMIN
     Dosage: 1000 MICROGRAM, QD
     Route: 048
  18. CANNABIDIOL\HERBALS [Concomitant]
     Active Substance: CANNABIDIOL\HERBALS
     Dosage: 0.5 MILLILITER, TID
     Route: 065
     Dates: start: 201902
  19. CALCIUM\VITAMIN D [Concomitant]
     Active Substance: CALCIUM\VITAMIN D
     Route: 065
  20. PREDNISONE [Concomitant]
     Active Substance: PREDNISONE
     Dosage: 10 MILLIGRAM, QD
     Route: 048
  21. GAMMAGARD [Concomitant]
     Active Substance: HUMAN IMMUNOGLOBULIN G
     Route: 065
  22. IMURAN [Concomitant]
     Active Substance: AZATHIOPRINE
     Dosage: 200 MILLIGRAM, QD
     Route: 048
  23. PREGABALIN [Concomitant]
     Active Substance: PREGABALIN
     Dosage: 50 MILLIGRAM, TID
     Route: 048
  24. CELEBREX [Concomitant]
     Active Substance: CELECOXIB
     Dosage: 200 MILLIGRAM, QD
     Route: 048

REACTIONS (14)
  - Trigeminal neuralgia [Unknown]
  - Sleep disorder [Unknown]
  - Facial pain [Unknown]
  - Aspartate aminotransferase increased [Unknown]
  - Weight increased [Unknown]
  - Sleep disorder due to a general medical condition [Unknown]
  - Cognitive disorder [Unknown]
  - Phantom limb syndrome [Unknown]
  - Musculoskeletal stiffness [Not Recovered/Not Resolved]
  - Gait disturbance [Unknown]
  - White blood cell count decreased [Unknown]
  - Pain [Not Recovered/Not Resolved]
  - Fatigue [Unknown]
  - Intentional product use issue [Unknown]

NARRATIVE: CASE EVENT DATE: 20200427
